FAERS Safety Report 4428702-1 (Version None)
Quarter: 2004Q3

REPORT INFORMATION
  Report Type: 
  Country: None (occurrence: None)
  Receive Date: 20040818
  Receipt Date: 20031229
  Transmission Date: 20050211
  Serious: Yes (Hospitalization)
  Sender: FDA-Public Use
  Company Number: US-BRISTOL-MYERS SQUIBB COMPANY-12466181

PATIENT
  Age: 23 Year
  Sex: Female
  Weight: 46 kg

DRUGS (1)
  1. TEQUIN [Suspect]
     Indication: BRONCHITIS
     Route: 048
     Dates: start: 20031216, end: 20031225

REACTIONS (1)
  - PSYCHOTIC DISORDER [None]
